FAERS Safety Report 5695168-3 (Version None)
Quarter: 2008Q2

REPORT INFORMATION
  Report Type: 
  Country: None (occurrence: None)
  Receive Date: 20080404
  Receipt Date: 20080325
  Transmission Date: 20081010
  Serious: Yes (Other)
  Sender: FDA-Public Use
  Company Number: US-PFIZER INC-2008026984

PATIENT
  Sex: Male
  Weight: 86.2 kg

DRUGS (2)
  1. DILANTIN [Suspect]
     Indication: MUSCULAR DYSTROPHY
  2. ANTIHYPERTENSIVES [Concomitant]
     Indication: HYPERTENSION

REACTIONS (1)
  - VERTIGO [None]
